FAERS Safety Report 4283810-3 (Version None)
Quarter: 2004Q1

REPORT INFORMATION
  Report Type: 
  Country: None (occurrence: None)
  Receive Date: 20040130
  Receipt Date: 20040120
  Transmission Date: 20041129
  Serious: Yes (Death)
  Sender: FDA-Public Use
  Company Number: KDL064484

PATIENT
  Age: 48 Year
  Sex: Male

DRUGS (1)
  1. PROCRIT [Suspect]
     Indication: HIV INFECTION
     Dosage: 10000 U, 3 IN 1 WEEKS, SC
     Route: 058
     Dates: start: 20020101

REACTIONS (1)
  - HIV DISEASE PROGRESSION [None]
